FAERS Safety Report 5739431-6 (Version None)
Quarter: 2008Q2

REPORT INFORMATION
  Report Type: 
  Country: None (occurrence: None)
  Receive Date: 20080513
  Receipt Date: 20080425
  Transmission Date: 20081010
  Serious: Yes (Other)
  Sender: FDA-Public Use
  Company Number: 026414

PATIENT
  Age: 23 Year
  Sex: Female

DRUGS (3)
  1. CLARAVIS [Suspect]
     Dosage: 40 MG, QD, ORAL; 20 MG, QD, ORAL
     Route: 048
     Dates: start: 20071019, end: 20080124
  2. CLARAVIS [Suspect]
     Dosage: 40 MG, QD, ORAL; 20 MG, QD, ORAL
     Route: 048
     Dates: start: 20080310, end: 20080315
  3. NUVARING (ETONOGESTREL) [Concomitant]

REACTIONS (7)
  - BLOOD ALKALINE PHOSPHATASE INCREASED [None]
  - BLOOD CHOLESTEROL INCREASED [None]
  - DRUG EXPOSURE DURING PREGNANCY [None]
  - LOW DENSITY LIPOPROTEIN INCREASED [None]
  - ORAL SURGERY [None]
  - TREATMENT NONCOMPLIANCE [None]
  - UNINTENDED PREGNANCY [None]
